FAERS Safety Report 6484055-9 (Version None)
Quarter: 2009Q4

REPORT INFORMATION
  Report Type: 
  Country: None (occurrence: None)
  Receive Date: 20091209
  Receipt Date: 20090519
  Transmission Date: 20100525
  Serious: No
  Sender: FDA-Public Use
  Company Number: US-AMGEN-KDL347800

PATIENT
  Sex: Male
  Weight: 129.4 kg

DRUGS (3)
  1. ENBREL [Suspect]
     Indication: PSORIASIS
  2. ENBREL [Suspect]
     Indication: PSORIATIC ARTHROPATHY
  3. METFORMIN HCL [Concomitant]

REACTIONS (3)
  - DRUG INEFFECTIVE [None]
  - LIVER DISORDER [None]
  - OVERWEIGHT [None]
